FAERS Safety Report 5537654-2 (Version None)
Quarter: 2007Q4

REPORT INFORMATION
  Report Type: 
  Country: None (occurrence: None)
  Receive Date: 20071207
  Receipt Date: 20071127
  Transmission Date: 20080405
  Serious: Yes (Other)
  Sender: FDA-Public Use
  Company Number: AT-JNJFOC-20071108836

PATIENT
  Age: 33 Year
  Sex: Male

DRUGS (10)
  1. TRAMADOL HCL [Suspect]
     Route: 065
  2. TRAMADOL HCL [Suspect]
     Route: 065
  3. TRAMADOL HCL [Suspect]
     Indication: DRUG USE FOR UNKNOWN INDICATION
     Route: 065
  4. DOTHIEPIN HYDROCHLORIDE [Suspect]
     Indication: DRUG USE FOR UNKNOWN INDICATION
     Route: 065
  5. ALPRAZOLAM [Concomitant]
  6. DIAZEPAM [Concomitant]
  7. BROMAZEPAM [Concomitant]
  8. ALCOHOL [Concomitant]
  9. BENZODIAZEPINE DERIVATIVES [Concomitant]
  10. HARMOMED [Concomitant]

REACTIONS (4)
  - DRUG TOXICITY [None]
  - OVERDOSE [None]
  - PLEUROTHOTONUS [None]
  - WITHDRAWAL SYNDROME [None]
